FAERS Safety Report 10411839 (Version 1)
Quarter: 2014Q3

REPORT INFORMATION
  Report Type: Spontaneous
  Country: US (occurrence: None)
  Receive Date: 20140826
  Receipt Date: 20140826
  Transmission Date: 20150326
  Serious: No
  Sender: FDA-Public Use
  Company Number: None

PATIENT

DRUGS (2)
  1. POTASSIUM CL 20 MEQ [Suspect]
     Active Substance: POTASSIUM CHLORIDE
  2. KCL [Suspect]
     Active Substance: POTASSIUM CHLORIDE

REACTIONS (3)
  - Incorrect dose administered [None]
  - Intercepted drug dispensing error [None]
  - Drug dispensing error [None]
